FAERS Safety Report 4733402-4 (Version None)
Quarter: 2005Q3

REPORT INFORMATION
  Report Type: 
  Country: None (occurrence: None)
  Receive Date: 20050729
  Receipt Date: 20050712
  Transmission Date: 20060218
  Serious: Yes (Hospitalization)
  Sender: FDA-Public Use
  Company Number: WAES 0507USA01881

PATIENT
  Age: 62 Year
  Sex: Male

DRUGS (7)
  1. COZAAR [Suspect]
     Indication: HYPERTENSION
     Dosage: SEE IMAGE
     Route: 048
     Dates: start: 20010413, end: 20010703
  2. COZAAR [Suspect]
     Indication: HYPERTENSION
     Dosage: SEE IMAGE
     Route: 048
     Dates: start: 20010704, end: 20011009
  3. COZAAR [Suspect]
     Indication: HYPERTENSION
     Dosage: SEE IMAGE
     Route: 048
     Dates: start: 20011010, end: 20040607
  4. COZAAR [Suspect]
     Indication: HYPERTENSION
     Dosage: SEE IMAGE
     Route: 048
     Dates: start: 20040608, end: 20040907
  5. DOXAZOSIN MESYLATE [Suspect]
     Indication: HYPERTENSION
     Dosage: 4 MG/DAILY, PO
     Route: 048
     Dates: start: 20010423, end: 20040907
  6. NORVASC [Concomitant]
  7. GUANABENZ ACETATE [Concomitant]

REACTIONS (7)
  - AZOTAEMIA [None]
  - CARDIAC FAILURE [None]
  - CARDIOMEGALY [None]
  - HAEMODIALYSIS [None]
  - LUNG DISORDER [None]
  - NEPHROGENIC ANAEMIA [None]
  - RENAL IMPAIRMENT [None]
